FAERS Safety Report 12537939 (Version 1)
Quarter: 2016Q3

REPORT INFORMATION
  Report Type: Report from Study
  Country: CA (occurrence: CA)
  Receive Date: 20160707
  Receipt Date: 20160707
  Transmission Date: 20161109
  Serious: Yes (Hospitalization, Other)
  Sender: FDA-Public Use
  Company Number: CA-ASTRAZENECA-2016SE46843

PATIENT
  Age: 88 Year
  Sex: Male

DRUGS (2)
  1. TYLENOL [Concomitant]
     Active Substance: ACETAMINOPHEN
     Indication: PAIN
  2. ZOLADEX LA [Suspect]
     Active Substance: GOSERELIN ACETATE
     Indication: PROSTATE CANCER
     Route: 058
     Dates: start: 20160407, end: 201606

REACTIONS (7)
  - Intestinal obstruction [Unknown]
  - Bone cancer [Unknown]
  - Constipation [Unknown]
  - Musculoskeletal disorder [Unknown]
  - Bone cancer [Not Recovered/Not Resolved]
  - Malaise [Unknown]
  - Hypoacusis [Unknown]
